FAERS Safety Report 7973325-0 (Version None)
Quarter: 2011Q4

REPORT INFORMATION
  Report Type: 
  Country: None (occurrence: None)
  Receive Date: 20111209
  Receipt Date: 20111124
  Transmission Date: 20120403
  Serious: Yes (Death, Life-Threatening, Hospitalization)
  Sender: FDA-Public Use
  Company Number: GER/GER/11/0022214

PATIENT

DRUGS (2)
  1. QUETIAPINE FUMARATE [Suspect]
     Indication: PRODUCT USED FOR UNKNOWN INDICATION
  2. CITALOPRAM HYDROBROMIDE [Suspect]
     Indication: PRODUCT USED FOR UNKNOWN INDICATION

REACTIONS (10)
  - COMA [None]
  - CONVULSION [None]
  - PULSELESS ELECTRICAL ACTIVITY [None]
  - CARDIOTOXICITY [None]
  - PNEUMONIA [None]
  - DELIRIUM [None]
  - ARRHYTHMIA [None]
  - VENTRICULAR TACHYCARDIA [None]
  - OVERDOSE [None]
  - SOMNOLENCE [None]
